FAERS Safety Report 18778361 (Version 2)
Quarter: 2021Q1

REPORT INFORMATION
  Report Type: Report from Study
  Country: US (occurrence: US)
  Receive Date: 20210123
  Receipt Date: 20210227
  Transmission Date: 20210419
  Serious: Yes (Death, Hospitalization, Other)
  Sender: FDA-Public Use
  Company Number: US-SHIRE-US201917955

PATIENT
  Age: 61 Year
  Sex: Female

DRUGS (8)
  1. TEDUGLUTIDE [Suspect]
     Active Substance: TEDUGLUTIDE
     Dosage: 0.2860 UNK, QD
     Route: 058
     Dates: start: 20181206
  2. TEDUGLUTIDE [Suspect]
     Active Substance: TEDUGLUTIDE
     Indication: SHORT-BOWEL SYNDROME
     Dosage: 0.38 MILLILITER, 1X/DAY:QD
     Route: 058
     Dates: start: 20181111
  3. TEDUGLUTIDE [Suspect]
     Active Substance: TEDUGLUTIDE
     Indication: SHORT-BOWEL SYNDROME
     Dosage: 0.38 MILLILITER, 1X/DAY:QD
     Route: 058
     Dates: start: 20181111
  4. TEDUGLUTIDE [Suspect]
     Active Substance: TEDUGLUTIDE
     Dosage: 0.2860 UNK, QD
     Route: 058
     Dates: start: 20181206
  5. TEDUGLUTIDE [Suspect]
     Active Substance: TEDUGLUTIDE
     Indication: SHORT-BOWEL SYNDROME
     Dosage: 0.38 MILLILITER, 1X/DAY:QD
     Route: 058
     Dates: start: 20181111
  6. TEDUGLUTIDE [Suspect]
     Active Substance: TEDUGLUTIDE
     Indication: SHORT-BOWEL SYNDROME
     Dosage: 0.38 MILLILITER, 1X/DAY:QD
     Route: 058
     Dates: start: 20181111
  7. TEDUGLUTIDE [Suspect]
     Active Substance: TEDUGLUTIDE
     Dosage: 0.2860 UNK, QD
     Route: 058
     Dates: start: 20181206
  8. TEDUGLUTIDE [Suspect]
     Active Substance: TEDUGLUTIDE
     Dosage: 0.2860 UNK, QD
     Route: 058
     Dates: start: 20181206

REACTIONS (5)
  - Inappropriate schedule of product administration [Unknown]
  - Product dose omission issue [Not Recovered/Not Resolved]
  - Somnolence [Unknown]
  - Death [Fatal]
  - Colonic fistula [Unknown]

NARRATIVE: CASE EVENT DATE: 20200114
